FAERS Safety Report 9902178 (Version 1)
Quarter: 2014Q1

REPORT INFORMATION
  Report Type: Report from Study
  Country: US (occurrence: US)
  Receive Date: 20140217
  Receipt Date: 20140217
  Transmission Date: 20141002
  Serious: Yes (Other)
  Sender: FDA-Public Use
  Company Number: US-JNJFOC-20140205964

PATIENT
  Age: 64 Year
  Sex: Female
  Weight: 47.63 kg

DRUGS (6)
  1. REMICADE [Suspect]
     Indication: RHEUMATOID ARTHRITIS
     Route: 042
  2. VALSARTAN [Concomitant]
     Indication: HYPERTENSION
     Route: 048
     Dates: start: 2011
  3. HCTZ [Concomitant]
     Indication: HYPERTENSION
     Route: 048
     Dates: start: 2011
  4. CARVEDILOL [Concomitant]
     Indication: HYPERTENSION
     Route: 048
     Dates: start: 2012
  5. FOLIC ACID [Concomitant]
     Route: 048
  6. ASPIRIN [Concomitant]
     Route: 048

REACTIONS (4)
  - Cardiac stress test abnormal [Unknown]
  - Nasal congestion [Not Recovered/Not Resolved]
  - Adverse event [Unknown]
  - Sinusitis [Recovered/Resolved]
